FAERS Safety Report 23696860 (Version 2)
Quarter: 2024Q2

REPORT INFORMATION
  Report Type: Spontaneous
  Country: US (occurrence: US)
  Receive Date: 20240402
  Receipt Date: 20240421
  Transmission Date: 20240716
  Serious: No
  Sender: FDA-Public Use
  Company Number: US-ELI_LILLY_AND_COMPANY-US202403017989

PATIENT
  Age: 67 Year
  Sex: Female

DRUGS (4)
  1. ABEMACICLIB [Suspect]
     Active Substance: ABEMACICLIB
     Indication: Breast cancer metastatic
     Dosage: UNK UNK, UNKNOWN
     Route: 065
     Dates: start: 20220503
  2. IBRANCE [Suspect]
     Active Substance: PALBOCICLIB
     Indication: Breast cancer female
     Dosage: 100 MG, UNKNOWN
     Route: 048
  3. PALBOCICLIB [Suspect]
     Active Substance: PALBOCICLIB
     Indication: Breast cancer female
     Dosage: 100 MG, DAILY
     Route: 048
  4. EXEMESTANE [Concomitant]
     Active Substance: EXEMESTANE
     Indication: Breast cancer metastatic
     Dosage: UNK
     Dates: start: 20181221

REACTIONS (3)
  - Cardiac disorder [Unknown]
  - Drug intolerance [Unknown]
  - Neutropenia [Unknown]
